FAERS Safety Report 4876313-6 (Version None)
Quarter: 2006Q1

REPORT INFORMATION
  Report Type: 
  Country: None (occurrence: None)
  Receive Date: 20060110
  Receipt Date: 20060104
  Transmission Date: 20060701
  Serious: Yes (Other)
  Sender: FDA-Public Use
  Company Number: FI-BOEHRINGER INGELHEIM PHARMACEUTICALS, INC.-2006-BP-00155YA

PATIENT
  Sex: Male

DRUGS (2)
  1. OMNIC CAPSULES [Suspect]
     Indication: BENIGN PROSTATIC HYPERPLASIA
     Route: 048
     Dates: start: 20051013, end: 20051028
  2. CARVEDILOL [Concomitant]
     Indication: HYPERTENSION
     Route: 048

REACTIONS (4)
  - DEFAECATION URGENCY [None]
  - MAJOR DEPRESSION [None]
  - MICTURITION URGENCY [None]
  - SUICIDAL IDEATION [None]
